FAERS Safety Report 8285376-X (Version None)
Quarter: 2012Q2

REPORT INFORMATION
  Report Type: 
  Country: None (occurrence: None)
  Receive Date: 20120413
  Receipt Date: 20111109
  Transmission Date: 20120825
  Serious: No
  Sender: FDA-Public Use
  Company Number: US-ASTRAZENECA-2011SE65316

PATIENT
  Age: 39 Year
  Sex: Female

DRUGS (5)
  1. NEXIUM [Suspect]
     Route: 048
  2. PREMARIN [Concomitant]
  3. OXYCODONE HCL [Concomitant]
  4. NYSTOP TOP POWDER [Concomitant]
  5. SERTIALINE [Concomitant]

REACTIONS (7)
  - PAIN [None]
  - INSOMNIA [None]
  - MALAISE [None]
  - REGURGITATION [None]
  - DRUG DOSE OMISSION [None]
  - APHAGIA [None]
  - VOMITING [None]
